FAERS Safety Report 4595498-2 (Version None)
Quarter: 2005Q1

REPORT INFORMATION
  Report Type: 
  Country: None (occurrence: None)
  Receive Date: 20050302
  Receipt Date: 20050223
  Transmission Date: 20050727
  Serious: Yes (Hospitalization)
  Sender: FDA-Public Use
  Company Number: JP-JNJFOC-20041007319

PATIENT
  Sex: Female
  Weight: 52 kg

DRUGS (17)
  1. REMICADE [Suspect]
     Route: 042
  2. REMICADE [Suspect]
     Indication: RHEUMATOID ARTHRITIS
     Route: 042
  3. RHEUMATREX [Suspect]
     Indication: RHEUMATOID ARTHRITIS
     Route: 049
  4. PREDNISOLONE [Suspect]
     Route: 049
  5. PREDNISOLONE [Suspect]
     Route: 049
  6. PREDNISOLONE [Suspect]
     Route: 049
  7. PREDNISOLONE [Suspect]
     Route: 049
  8. PREDNISOLONE [Suspect]
     Route: 049
  9. PREDNISOLONE [Suspect]
     Route: 049
  10. PREDNISOLONE [Suspect]
     Route: 049
  11. PREDNISOLONE [Suspect]
     Route: 049
  12. PREDNISOLONE [Suspect]
     Route: 049
  13. PREDNISOLONE [Suspect]
     Indication: RHEUMATOID ARTHRITIS
     Route: 049
  14. SOLU-MEDROL [Suspect]
     Route: 042
  15. SOLU-MEDROL [Suspect]
     Indication: RHEUMATOID ARTHRITIS
     Route: 042
  16. LOXONINE [Concomitant]
     Indication: RHEUMATOID ARTHRITIS
     Route: 049
  17. AZULFADINE [Concomitant]
     Indication: RHEUMATOID ARTHRITIS
     Route: 049

REACTIONS (5)
  - ARTHRITIS BACTERIAL [None]
  - DIARRHOEA [None]
  - PNEUMOCYSTIS JIROVECI INFECTION [None]
  - RHEUMATOID ARTHRITIS [None]
  - STOMATITIS [None]
